FAERS Safety Report 10501882 (Version 1)
Quarter: 2014Q4

REPORT INFORMATION
  Report Type: Spontaneous
  Country: US (occurrence: US)
  Receive Date: 20141007
  Receipt Date: 20141007
  Transmission Date: 20150528
  Serious: No
  Sender: FDA-Public Use
  Company Number: US-PFIZER INC-2014272626

PATIENT
  Age: 6 Year
  Sex: Male

DRUGS (1)
  1. AZITHROMYCIN [Suspect]
     Active Substance: AZITHROMYCIN ANHYDROUS
     Indication: PNEUMONIA
     Dosage: UNK, 250MG/5 ML

REACTIONS (4)
  - Erythema [Recovered/Resolved]
  - Peripheral swelling [Not Recovered/Not Resolved]
  - Hypersensitivity [Unknown]
  - Feeling hot [Recovered/Resolved]
